FAERS Safety Report 13826724 (Version 1)
Quarter: 2017Q3

REPORT INFORMATION
  Report Type: Spontaneous
  Country: US (occurrence: US)
  Receive Date: 20170802
  Receipt Date: 20170802
  Transmission Date: 20171127
  Serious: No
  Sender: FDA-Public Use
  Company Number: US-ROCHE-643941

PATIENT
  Age: 62 Year
  Sex: Female
  Weight: 79.4 kg

DRUGS (11)
  1. BONIVA [Suspect]
     Active Substance: IBANDRONATE SODIUM
     Indication: OSTEOARTHRITIS
     Dosage: OTHER INDICATION: OSTEOPOROSIS
     Route: 048
  2. BONIVA [Suspect]
     Active Substance: IBANDRONATE SODIUM
     Dosage: FREQUENCY: ONCE
     Route: 048
     Dates: start: 20090609, end: 20090701
  3. BENICAR HCT [Concomitant]
     Active Substance: HYDROCHLOROTHIAZIDE\OLMESARTAN MEDOXOMIL
     Dosage: DOES: 20 MG/12.5 MG
     Route: 065
  4. VITAMIN B COMPLEX [Concomitant]
     Active Substance: CYANOCOBALAMIN\DEXPANTHENOL\NIACINAMIDE\PYRIDOXINE HYDROCHLORIDE\RIBOFLAVIN 5^-PHOSPHATE SODIUM\THIAMINE HYDROCHLORIDE\VITAMIN B COMPLEX
     Route: 065
  5. RESTASIS [Concomitant]
     Active Substance: CYCLOSPORINE
     Dosage: DOSE: 1 DROP OU
     Route: 047
  6. METHOTREXATE. [Concomitant]
     Active Substance: METHOTREXATE
     Dosage: FREQUENCY: WEEKLY
     Route: 065
  7. CALCIUM CARBONATE. [Concomitant]
     Active Substance: CALCIUM CARBONATE
     Dosage: DRUG REPORTED: CALCIUM + D CARBONATE
     Route: 065
  8. FERROUS SULFATE. [Concomitant]
     Active Substance: FERROUS SULFATE
     Route: 065
  9. CALCITRIOL. [Concomitant]
     Active Substance: CALCITRIOL
     Route: 065
  10. DETROL LA [Concomitant]
     Active Substance: TOLTERODINE TARTRATE
     Route: 065
  11. FISH OIL [Concomitant]
     Active Substance: FISH OIL
     Route: 065

REACTIONS (7)
  - Blood chloride decreased [Unknown]
  - Musculoskeletal pain [Unknown]
  - Bone pain [Recovering/Resolving]
  - Gait inability [Unknown]
  - Blood glucose increased [Unknown]
  - Pain in extremity [Unknown]
  - Influenza like illness [Unknown]

NARRATIVE: CASE EVENT DATE: 20090604
